FAERS Safety Report 11222229 (Version 1)
Quarter: 2015Q2

REPORT INFORMATION
  Report Type: Spontaneous
  Country: CH (occurrence: CH)
  Receive Date: 20150626
  Receipt Date: 20150626
  Transmission Date: 20150821
  Serious: Yes (Other)
  Sender: FDA-Public Use
  Company Number: CH-JNJFOC-20150613302

PATIENT
  Age: 29 Year
  Sex: Female

DRUGS (2)
  1. ETHINYLESTRADIOL/GESTODENE [Interacting]
     Active Substance: ETHINYL ESTRADIOL\GESTODENE
     Indication: CONTRACEPTION
     Route: 048
     Dates: start: 2015, end: 20150416
  2. TOPAMAX [Suspect]
     Active Substance: TOPIRAMATE
     Indication: MIGRAINE PROPHYLAXIS
     Route: 048
     Dates: start: 2015, end: 20150416

REACTIONS (4)
  - Drug interaction [Recovered/Resolved]
  - Drug effect decreased [Recovered/Resolved]
  - Exposure during pregnancy [Unknown]
  - Pregnancy on oral contraceptive [Unknown]

NARRATIVE: CASE EVENT DATE: 2015
